FAERS Safety Report 9096581 (Version 3)
Quarter: 2013Q1

REPORT INFORMATION
  Report Type: Spontaneous
  Country: US (occurrence: None)
  Receive Date: 20130124
  Receipt Date: 20130308
  Transmission Date: 20140127
  Serious: Yes (Other)
  Sender: FDA-Public Use
  Company Number: JPI-P-023759

PATIENT
  Age: 87 Year
  Sex: Female
  Weight: 75.3 kg

DRUGS (16)
  1. XYREM (500 MILLIGRAM/MILLILITERS, SOLUTION) (SODIUM OXYBATE) [Suspect]
     Indication: CATAPLEXY
     Dosage: 9 GM (4.5 GM, 2 IN 1 D), ORAL
     Route: 048
     Dates: start: 20041222
  2. GLYBURIDE [Concomitant]
  3. FUROSEMIDE [Concomitant]
  4. POTASSIUM [Concomitant]
  5. DILTIAZEM [Concomitant]
  6. ATENOLOL [Concomitant]
  7. GUAIFENESIN [Concomitant]
  8. FLUTICASONE, SALMETEROL [Concomitant]
  9. MODAFINIL [Concomitant]
  10. VENLAFAXINE HYDROCHLORIDE [Concomitant]
  11. ASPIRIN [Concomitant]
  12. FENTANYL [Concomitant]
  13. HYDROCODONE/ACETAMINOPHEN [Concomitant]
  14. MECLIZINE HCL [Concomitant]
  15. METHYLPHENIDATE [Concomitant]
  16. PRAMIPEXOLE [Concomitant]

REACTIONS (18)
  - Hypersensitivity [None]
  - Angioedema [None]
  - Chronic obstructive pulmonary disease [None]
  - Hypoxia [None]
  - Bronchitis [None]
  - Arthropod sting [None]
  - Haematoma [None]
  - Infection [None]
  - Cellulitis [None]
  - Cardiac failure congestive [None]
  - Pneumonia [None]
  - Throat tightness [None]
  - Lip swelling [None]
  - Swollen tongue [None]
  - Asthenia [None]
  - Malaise [None]
  - Dyspnoea [None]
  - Oedema peripheral [None]
